FAERS Safety Report 13626713 (Version 2)
Quarter: 2017Q2

REPORT INFORMATION
  Report Type: Report from Study
  Country: TR (occurrence: TR)
  Receive Date: 20170608
  Receipt Date: 20170621
  Transmission Date: 20170830
  Serious: Yes (Other)
  Sender: FDA-Public Use
  Company Number: TR-SA-2015SA178320

PATIENT
  Age: 41 Year
  Sex: Female
  Weight: 82 kg

DRUGS (13)
  1. VENTOLIN [Suspect]
     Active Substance: ALBUTEROL SULFATE
     Indication: ASTHMA
     Dosage: DOSE:2 PUFF(S)
     Route: 055
     Dates: start: 1994
  2. SERETIDE [Suspect]
     Active Substance: FLUTICASONE PROPIONATE\SALMETEROL XINAFOATE
     Indication: ASTHMA
     Route: 055
     Dates: start: 20150107
  3. SERETIDE [Suspect]
     Active Substance: FLUTICASONE PROPIONATE\SALMETEROL XINAFOATE
     Indication: ASTHMA
     Route: 055
     Dates: start: 1994, end: 20150106
  4. SAR231893 [Suspect]
     Active Substance: DUPILUMAB
     Indication: ASTHMA
     Route: 058
     Dates: start: 20150212, end: 20151118
  5. AVAMYS [Concomitant]
     Active Substance: FLUTICASONE FUROATE
     Route: 045
     Dates: start: 201402
  6. SAR231893 [Suspect]
     Active Substance: DUPILUMAB
     Indication: ASTHMA
     Route: 058
     Dates: start: 20150128, end: 20150128
  7. SAR231893 [Suspect]
     Active Substance: DUPILUMAB
     Indication: ASTHMA
     Route: 058
     Dates: start: 20150212, end: 20151118
  8. PREDNOL [Concomitant]
     Active Substance: METHYLPREDNISOLONE
     Route: 048
     Dates: start: 20150728, end: 20150802
  9. LANSOR [Concomitant]
     Active Substance: LANSOPRAZOLE
     Indication: PROPHYLAXIS
     Route: 048
     Dates: start: 1994
  10. AUGMENTIN [Concomitant]
     Active Substance: AMOXICILLIN\CLAVULANATE POTASSIUM
     Dosage: AUGMENTIN BID
     Route: 048
     Dates: start: 20150728, end: 20150802
  11. MONTELUKAST SODIUM. [Concomitant]
     Active Substance: MONTELUKAST SODIUM
     Route: 048
     Dates: start: 1994, end: 20150106
  12. MINOSET [Concomitant]
     Active Substance: ACETAMINOPHEN
     Route: 048
     Dates: start: 20150728, end: 20150802
  13. MONTELUKAST SODIUM. [Concomitant]
     Active Substance: MONTELUKAST SODIUM
     Route: 048
     Dates: start: 20150107

REACTIONS (2)
  - Hypersensitivity [Recovered/Resolved]
  - Hypersensitivity [Recovered/Resolved]

NARRATIVE: CASE EVENT DATE: 20151103
